FAERS Safety Report 7509785-9 (Version None)
Quarter: 2011Q2

REPORT INFORMATION
  Report Type: 
  Country: None (occurrence: None)
  Receive Date: 20110527
  Receipt Date: 20110518
  Transmission Date: 20111010
  Serious: Yes (Hospitalization)
  Sender: FDA-Public Use
  Company Number: TR-ASTRAZENECA-2011SE29706

PATIENT
  Age: 54 Year
  Sex: Male

DRUGS (7)
  1. METOPROLOL TARTRATE [Concomitant]
  2. ACETYLSALICYLIC ACID SRT [Concomitant]
  3. ESCITALOPRAM [Interacting]
     Indication: ANXIETY
  4. QUETIAPINE [Suspect]
     Indication: ANXIETY
     Route: 048
  5. QUETIAPINE [Interacting]
     Indication: BIPOLAR I DISORDER
     Route: 048
  6. ESCITALOPRAM [Interacting]
     Indication: BIPOLAR I DISORDER
  7. OLMESARTAN MEDOXOMIL [Concomitant]

REACTIONS (2)
  - RHABDOMYOLYSIS [None]
  - DRUG INTERACTION [None]
